FAERS Safety Report 12025378 (Version 1)
Quarter: 2016Q1

REPORT INFORMATION
  Report Type: Report from Study
  Country: US (occurrence: US)
  Receive Date: 20160206
  Receipt Date: 20160206
  Transmission Date: 20160526
  Serious: No
  Sender: FDA-Public Use
  Company Number: US-ABBVIE-15K-163-1482149-00

PATIENT
  Age: 76 Year
  Sex: Female
  Weight: 83.08 kg

DRUGS (10)
  1. COMBIVENT [Concomitant]
     Active Substance: ALBUTEROL SULFATE\IPRATROPIUM BROMIDE
     Indication: EMPHYSEMA
  2. ADVAIR HFA [Concomitant]
     Active Substance: FLUTICASONE PROPIONATE\SALMETEROL XINAFOATE
     Indication: EMPHYSEMA
  3. PREDNISONE. [Suspect]
     Active Substance: PREDNISONE
     Indication: NASOPHARYNGITIS
     Route: 065
     Dates: start: 201510
  4. VERAPAMIL [Concomitant]
     Active Substance: VERAPAMIL HYDROCHLORIDE
     Indication: HYPERTENSION
  5. FLUOXETINE [Concomitant]
     Active Substance: FLUOXETINE HYDROCHLORIDE
     Indication: DEPRESSION
  6. VITAMIN D3 [Concomitant]
     Active Substance: CHOLECALCIFEROL
     Indication: PRODUCT USED FOR UNKNOWN INDICATION
  7. CRESTOR [Concomitant]
     Active Substance: ROSUVASTATIN CALCIUM
     Indication: BLOOD CHOLESTEROL INCREASED
  8. HUMIRA [Suspect]
     Active Substance: ADALIMUMAB
     Indication: PSORIASIS
     Route: 058
     Dates: start: 201508
  9. CENTRUM SILVER [Concomitant]
     Active Substance: MINERALS\VITAMINS
     Indication: VITAMIN SUPPLEMENTATION
  10. OXYGEN. [Concomitant]
     Active Substance: OXYGEN
     Indication: EMPHYSEMA
     Dosage: AT NIGHT

REACTIONS (11)
  - Head discomfort [Not Recovered/Not Resolved]
  - Fatigue [Recovered/Resolved]
  - Productive cough [Not Recovered/Not Resolved]
  - Asthenia [Recovered/Resolved]
  - Device issue [Unknown]
  - Nasopharyngitis [Recovering/Resolving]
  - Drug dose omission [Not Recovered/Not Resolved]
  - Nasopharyngitis [Recovered/Resolved]
  - Back pain [Recovering/Resolving]
  - Dizziness [Recovered/Resolved]
  - Oropharyngeal discomfort [Recovering/Resolving]

NARRATIVE: CASE EVENT DATE: 201510
